FAERS Safety Report 11416665 (Version 1)
Quarter: 2015Q3

REPORT INFORMATION
  Report Type: Spontaneous
  Country: TR (occurrence: TR)
  Receive Date: 20150825
  Receipt Date: 20150825
  Transmission Date: 20151125
  Serious: Yes (Hospitalization)
  Sender: FDA-Public Use
  Company Number: TR-ASTRAZENECA-2015SE81204

PATIENT
  Age: 26347 Day
  Sex: Male

DRUGS (5)
  1. DIKLORON [Concomitant]
  2. LASIX [Concomitant]
     Active Substance: FUROSEMIDE
  3. MUCOPLUS [Concomitant]
  4. SYMBICORT [Suspect]
     Active Substance: BUDESONIDE\FORMOTEROL FUMARATE DIHYDRATE
     Indication: CHRONIC OBSTRUCTIVE PULMONARY DISEASE
     Dosage: 160/4.5 MCG, UNKNOWN FREQUENCY
     Route: 055
  5. LANSOR [Concomitant]
     Active Substance: LANSOPRAZOLE

REACTIONS (3)
  - Product quality issue [Unknown]
  - Respiratory disorder [Recovered/Resolved]
  - Overdose [Unknown]

NARRATIVE: CASE EVENT DATE: 20150816
